FAERS Safety Report 7048471-9 (Version None)
Quarter: 2010Q4

REPORT INFORMATION
  Report Type: 
  Country: None (occurrence: None)
  Receive Date: 20101015
  Receipt Date: 20101005
  Transmission Date: 20110411
  Serious: Yes (Hospitalization)
  Sender: FDA-Public Use
  Company Number: FR-GENENTECH-298718

PATIENT
  Sex: Male
  Weight: 95 kg

DRUGS (19)
  1. RITUXIMAB [Suspect]
     Indication: MANTLE CELL LYMPHOMA
     Dosage: 700 MG, UNK
     Route: 065
     Dates: start: 20091110
  2. RITUXIMAB [Suspect]
     Dosage: 700 MG, UNK
     Dates: start: 20100117
  3. DEXAMETHASONE [Suspect]
     Indication: MANTLE CELL LYMPHOMA
     Dosage: 40 MG/KG, UNK
     Route: 065
     Dates: start: 20091107, end: 20091110
  4. CISPLATIN [Suspect]
     Indication: MANTLE CELL LYMPHOMA
     Dosage: 200 MG, UNK
     Route: 042
     Dates: start: 20091107
  5. CISPLATIN [Suspect]
     Dosage: UNK
     Route: 042
     Dates: start: 20100116, end: 20100119
  6. CYTARABINE [Suspect]
     Indication: MANTLE CELL LYMPHOMA
     Dosage: 4 G, UNK
     Route: 065
     Dates: start: 20091107, end: 20091108
  7. CYTARABINE [Suspect]
     Dosage: 4 G, UNK
     Dates: start: 20100116, end: 20100117
  8. LEVOTHYROXINE SODIUM [Concomitant]
     Indication: HYPOTHYROIDISM
     Dosage: UNK
     Route: 048
  9. SERESTA [Concomitant]
     Indication: DEPRESSION
     Dosage: UNK
     Route: 048
  10. VALACYCLOVIR HYDROCHLORIDE [Concomitant]
     Indication: ANTIVIRAL PROPHYLAXIS
     Dosage: UNK
     Route: 048
     Dates: start: 20091106
  11. BACTRIM DS [Concomitant]
     Indication: PROPHYLAXIS
     Dosage: UNK
     Route: 048
     Dates: start: 20091106
  12. SPECIAFOLDINE [Concomitant]
     Indication: MEDICAL DIET
     Dosage: 1 DF, UNK
     Route: 048
     Dates: start: 20091106
  13. AMAREL [Concomitant]
     Indication: TYPE 2 DIABETES MELLITUS
     Dosage: UNK
     Route: 048
     Dates: start: 20020101
  14. INIPOMP [Concomitant]
     Indication: PROPHYLAXIS
     Dosage: UNK
     Route: 048
     Dates: start: 20091106
  15. METFORMIN [Concomitant]
     Indication: TYPE 2 DIABETES MELLITUS
     Dosage: UNK
     Route: 048
  16. FRACTAL [Concomitant]
     Indication: HYPERCHOLESTEROLAEMIA
     Dosage: UNK
     Route: 048
  17. PERINDOPRIL ERBUMINE [Concomitant]
     Indication: HYPERTENSION
     Dosage: UNK
     Route: 048
  18. AMLODIPINE [Concomitant]
     Indication: HYPERTENSION
     Dosage: UNK
     Route: 048
  19. NORSET [Concomitant]
     Indication: DEPRESSION
     Dosage: UNK
     Route: 048

REACTIONS (4)
  - ENTEROCOCCAL SEPSIS [None]
  - FEBRILE NEUTROPENIA [None]
  - SPINAL OSTEOARTHRITIS [None]
  - STREPTOCOCCAL SEPSIS [None]
